APPROVED DRUG PRODUCT: CYMBALTA
Active Ingredient: DULOXETINE HYDROCHLORIDE
Strength: EQ 30MG BASE
Dosage Form/Route: CAPSULE, DELAYED REL PELLETS;ORAL
Application: N021427 | Product #002
Applicant: ELI LILLY AND CO
Approved: Aug 3, 2004 | RLD: Yes | RS: No | Type: DISCN